FAERS Safety Report 5229293-8 (Version None)
Quarter: 2007Q1

REPORT INFORMATION
  Report Type: 
  Country: None (occurrence: None)
  Receive Date: 20061201
  Receipt Date: 20060907
  Transmission Date: 20070707
  Serious: No
  Sender: FDA-Public Use
  Company Number: US200609001882

PATIENT
  Age: 59 Year
  Sex: Female

DRUGS (8)
  1. CYMBALTA [Suspect]
     Indication: NEUROPATHY
     Dosage: SEE IMAGE
     Dates: end: 20060906
  2. CYMBALTA [Suspect]
     Indication: NEUROPATHY
     Dosage: SEE IMAGE
     Dates: start: 20060201
  3. AVONEX [Concomitant]
  4. IBUPROFEN [Concomitant]
  5. PROVIGIL [Concomitant]
  6. SYNTHROID [Concomitant]
  7. DETROL [Concomitant]
  8. ZETIA [Concomitant]

REACTIONS (3)
  - FEELING ABNORMAL [None]
  - GAIT DISTURBANCE [None]
  - HEADACHE [None]
